FAERS Safety Report 8502010-1 (Version None)
Quarter: 2012Q3

REPORT INFORMATION
  Report Type: 
  Country: None (occurrence: None)
  Receive Date: 20120711
  Receipt Date: 20120628
  Transmission Date: 20120928
  Serious: Yes (Other)
  Sender: FDA-Public Use
  Company Number: CA-BAYER-2012-062427

PATIENT
  Age: 57 Year
  Sex: Female

DRUGS (6)
  1. CLONAZEPAM [Concomitant]
  2. VITAMIN B-12 [Concomitant]
  3. VITAMIN D [Concomitant]
  4. BETASERON [Suspect]
     Indication: MULTIPLE SCLEROSIS
     Dosage: 0.25 MG, UNK
     Dates: start: 20000101
  5. LOVAZA [Concomitant]
  6. INTERFERON BETA-1B [Suspect]
     Indication: DEVICE THERAPY
     Dosage: 0.250 MG, UNK
     Dates: start: 20000101

REACTIONS (4)
  - INCISION SITE ERYTHEMA [None]
  - NEEDLE ISSUE [None]
  - INJECTION SITE PRURITUS [None]
  - INCISION SITE COMPLICATION [None]
